FAERS Safety Report 23493696 (Version 1)
Quarter: 2024Q1

REPORT INFORMATION
  Report Type: Spontaneous
  Country: GB (occurrence: GB)
  Receive Date: 20240207
  Receipt Date: 20240207
  Transmission Date: 20240410
  Serious: Yes (Other)
  Sender: FDA-Public Use
  Company Number: None

PATIENT
  Age: 30 Year
  Sex: Female

DRUGS (1)
  1. CERTOLIZUMAB PEGOL [Suspect]
     Active Substance: CERTOLIZUMAB PEGOL
     Indication: Product used for unknown indication
     Dosage: TAKEN EVERY FORTNIGHT
     Dates: start: 20231201

REACTIONS (6)
  - Throat irritation [Unknown]
  - Swelling of eyelid [Unknown]
  - Eye pruritus [Unknown]
  - Oral pruritus [Unknown]
  - Eye discharge [Unknown]
  - Nasal pruritus [Unknown]

NARRATIVE: CASE EVENT DATE: 20231201
